FAERS Safety Report 8528589-1 (Version None)
Quarter: 2012Q3

REPORT INFORMATION
  Report Type: 
  Country: None (occurrence: None)
  Receive Date: 20120723
  Receipt Date: 20120711
  Transmission Date: 20120928
  Serious: Yes (Hospitalization)
  Sender: FDA-Public Use
  Company Number: US-BIOGENIDEC-2012BI023006

PATIENT
  Sex: Male

DRUGS (2)
  1. AVONEX [Suspect]
     Indication: MULTIPLE SCLEROSIS
     Route: 030
  2. AVONEX [Suspect]
     Route: 030
     Dates: start: 20111001

REACTIONS (5)
  - LOCALISED INFECTION [None]
  - MENTAL STATUS CHANGES [None]
  - FEELING ABNORMAL [None]
  - OEDEMA PERIPHERAL [None]
  - FILARIASIS [None]
